FAERS Safety Report 8050565-6 (Version None)
Quarter: 2012Q1

REPORT INFORMATION
  Report Type: 
  Country: None (occurrence: None)
  Receive Date: 20120117
  Receipt Date: 20120110
  Transmission Date: 20120608
  Serious: No
  Sender: FDA-Public Use
  Company Number: US-PFIZER INC-2011113135

PATIENT
  Sex: Female
  Weight: 65.76 kg

DRUGS (2)
  1. LIPITOR [Suspect]
     Dosage: UNK
  2. ZOLOFT [Suspect]
     Indication: ANXIETY
     Dosage: 150 MG, DAILY
     Route: 048
     Dates: start: 19940101

REACTIONS (3)
  - DRUG INEFFECTIVE [None]
  - ANXIETY [None]
  - SELF ESTEEM DECREASED [None]
